FAERS Safety Report 6708186-0 (Version None)
Quarter: 2010Q2

REPORT INFORMATION
  Report Type: 
  Country: None (occurrence: None)
  Receive Date: 20100503
  Receipt Date: 20090916
  Transmission Date: 20101027
  Serious: No
  Sender: FDA-Public Use
  Company Number: US-ASTRAZENECA-2009SE07102

PATIENT
  Sex: Male
  Weight: 68 kg

DRUGS (4)
  1. NEXIUM [Suspect]
     Route: 048
  2. CARDIZEM [Concomitant]
  3. AVAPRO [Concomitant]
  4. ACIPHEX [Concomitant]

REACTIONS (9)
  - EATING DISORDER [None]
  - ERUCTATION [None]
  - INSOMNIA [None]
  - NAUSEA [None]
  - PRODUCT ODOUR ABNORMAL [None]
  - PRODUCT TASTE ABNORMAL [None]
  - SLEEP DISORDER DUE TO GENERAL MEDICAL CONDITION, INSOMNIA TYPE [None]
  - STRESS [None]
  - WEIGHT DECREASED [None]
